FAERS Safety Report 7368776-1 (Version None)
Quarter: 2011Q1

REPORT INFORMATION
  Report Type: 
  Country: None (occurrence: None)
  Receive Date: 20110314
  Receipt Date: 20110304
  Transmission Date: 20110831
  Serious: Yes (Life-Threatening, Hospitalization, Other)
  Sender: FDA-Public Use
  Company Number: 2011SP010181

PATIENT
  Age: 60 Year
  Sex: Female
  Weight: 80 kg

DRUGS (1)
  1. DEXAMETHASONE [Suspect]
     Indication: VOMITING
     Dosage: 4 MG; IV
     Route: 042
     Dates: start: 20110209, end: 20110209

REACTIONS (1)
  - ANASTOMOTIC LEAK [None]
